FAERS Safety Report 25759550 (Version 1)
Quarter: 2025Q3

REPORT INFORMATION
  Report Type: Spontaneous
  Country: IR (occurrence: IR)
  Receive Date: 20250904
  Receipt Date: 20250904
  Transmission Date: 20251021
  Serious: Yes (Life-Threatening, Hospitalization, Other)
  Sender: GRANULES PHARMACEUTICALS INC
  Company Number: IR-GRANULES-IR-2025GRALIT00491

PATIENT
  Age: 51 Year
  Sex: Female

DRUGS (2)
  1. ACETAMINOPHEN [Suspect]
     Active Substance: ACETAMINOPHEN
     Indication: Product used for unknown indication
     Route: 048
     Dates: start: 20231231
  2. DIGOXIN [Suspect]
     Active Substance: DIGOXIN
     Indication: Product used for unknown indication
     Route: 048
     Dates: start: 20231231

REACTIONS (4)
  - Acute hepatic failure [Recovered/Resolved]
  - Toxicity to various agents [Recovered/Resolved]
  - Miosis [Recovered/Resolved]
  - Intentional overdose [Unknown]

NARRATIVE: CASE EVENT DATE: 20231231
